FAERS Safety Report 5368063-7 (Version None)
Quarter: 2007Q2

REPORT INFORMATION
  Report Type: 
  Country: None (occurrence: None)
  Receive Date: 20070622
  Receipt Date: 20070614
  Transmission Date: 20071010
  Serious: Yes (Hospitalization, Other)
  Sender: FDA-Public Use
  Company Number: US-PFIZER INC-2007049312

PATIENT
  Sex: Female
  Weight: 97.272 kg

DRUGS (8)
  1. SOMAVERT [Suspect]
     Indication: ACROMEGALY
  2. NASONEX [Concomitant]
  3. AMLODIPINE [Concomitant]
  4. METFORMIN HCL [Concomitant]
  5. FEXOFENADINE [Concomitant]
  6. SYNTHROID [Concomitant]
  7. POTASSIUM CHLORIDE [Concomitant]
  8. IBUPROFEN [Concomitant]

REACTIONS (1)
  - ACUTE MYELOID LEUKAEMIA [None]
